FAERS Safety Report 11797287 (Version 2)
Quarter: 2015Q4

REPORT INFORMATION
  Report Type: Spontaneous
  Country: CN (occurrence: CN)
  Receive Date: 20151203
  Receipt Date: 20151209
  Transmission Date: 20160305
  Serious: Yes (Hospitalization)
  Sender: FDA-Public Use
  Company Number: CN-PFIZER INC-2015423449

PATIENT
  Age: 48 Year
  Sex: Male
  Weight: 80 kg

DRUGS (1)
  1. CELEBREX [Suspect]
     Active Substance: CELECOXIB
     Indication: COSTOCHONDRITIS
     Dosage: 1 DF, 1X/DAY
     Route: 048
     Dates: start: 20120814, end: 20120815

REACTIONS (1)
  - Rash vesicular [Recovering/Resolving]

NARRATIVE: CASE EVENT DATE: 20120815
